FAERS Safety Report 4699521-6 (Version None)
Quarter: 2005Q2

REPORT INFORMATION
  Report Type: 
  Country: None (occurrence: None)
  Receive Date: 20050622
  Receipt Date: 20050620
  Transmission Date: 20051028
  Serious: Yes (Death)
  Sender: FDA-Public Use
  Company Number: CZ-2005-004991

PATIENT
  Age: 19 Year
  Sex: Female

DRUGS (1)
  1. YASMIN [Suspect]
     Indication: ORAL CONTRACEPTION
     Dosage: 1 TAB / 24 DAY REGIMEN, ORAL
     Route: 048
     Dates: start: 20040503

REACTIONS (8)
  - BRAIN OEDEMA [None]
  - CARDIAC DISORDER [None]
  - GOODPASTURE'S SYNDROME [None]
  - HYPOTONIA [None]
  - PULMONARY HAEMORRHAGE [None]
  - PULMONARY HAEMOSIDEROSIS [None]
  - RENAL COLIC [None]
  - SUDDEN DEATH [None]
